FAERS Safety Report 6670835-3 (Version None)
Quarter: 2010Q2

REPORT INFORMATION
  Report Type: 
  Country: None (occurrence: None)
  Receive Date: 20100407
  Receipt Date: 20100331
  Transmission Date: 20101027
  Serious: Yes (Hospitalization, Other)
  Sender: FDA-Public Use
  Company Number: CH-BAYER-201020761GPV

PATIENT
  Age: 70 Year
  Sex: Female

DRUGS (5)
  1. CIPROXIN [Suspect]
     Indication: ERYSIPELAS
     Dosage: TOTAL DAILY DOSE: 1000 MG  UNIT DOSE: 500 MG
     Route: 048
     Dates: start: 20100301, end: 20100314
  2. ASPIRIN [Concomitant]
     Indication: DRUG USE FOR UNKNOWN INDICATION
  3. UNIMAX [Concomitant]
     Indication: DRUG USE FOR UNKNOWN INDICATION
  4. PRAVALOTIN [Concomitant]
  5. METO ZEROK [Concomitant]

REACTIONS (3)
  - CHEST X-RAY ABNORMAL [None]
  - INTERSTITIAL LUNG DISEASE [None]
  - RESPIRATORY DISTRESS [None]
